FAERS Safety Report 5383976-8 (Version None)
Quarter: 2007Q3

REPORT INFORMATION
  Report Type: 
  Country: None (occurrence: None)
  Receive Date: 20070711
  Receipt Date: 20070626
  Transmission Date: 20080115
  Serious: Yes (Death)
  Sender: FDA-Public Use
  Company Number: AU-AMGEN-AUS032915

PATIENT
  Sex: Male
  Weight: 67 kg

DRUGS (14)
  1. ARANESP [Suspect]
     Indication: RENAL FAILURE CHRONIC
     Route: 058
     Dates: start: 20030129, end: 20030225
  2. CALCITONIN-SALMON [Concomitant]
  3. DIGOXIN [Concomitant]
  4. DILTIAZEM HYDROCHLORIDE [Concomitant]
  5. CALTRATE [Concomitant]
  6. RANITIDINE [Concomitant]
  7. LASIX [Concomitant]
  8. WARFARIN SODIUM [Concomitant]
  9. GLYCERYL TRINITRATE [Concomitant]
     Route: 061
  10. FLUTICASONE PROPIONATE [Concomitant]
  11. VENTOLIN [Concomitant]
     Route: 055
  12. ATROVENT [Concomitant]
     Route: 055
  13. BENDROFLUAZIDE [Concomitant]
  14. EPREX [Concomitant]
     Route: 058
     Dates: start: 20030201

REACTIONS (3)
  - DEATH [None]
  - HYPERHIDROSIS [None]
  - RHINORRHOEA [None]
